FAERS Safety Report 23780428 (Version 1)
Quarter: 2024Q2

REPORT INFORMATION
  Report Type: Report from Study
  Country: BR (occurrence: BR)
  Receive Date: 20240424
  Receipt Date: 20240424
  Transmission Date: 20240716
  Serious: Yes (Other)
  Sender: FDA-Public Use
  Company Number: BR-ABBVIE-5730587

PATIENT
  Sex: Male
  Weight: 55 kg

DRUGS (1)
  1. SKYRIZI [Suspect]
     Active Substance: RISANKIZUMAB-RZAA
     Indication: Psoriasis
     Route: 030
     Dates: start: 20201124, end: 2023

REACTIONS (16)
  - Haematemesis [Not Recovered/Not Resolved]
  - Skin exfoliation [Unknown]
  - Skin wound [Unknown]
  - Gastrointestinal disorder [Not Recovered/Not Resolved]
  - Skin fissures [Recovered/Resolved]
  - Haemorrhage [Recovered/Resolved]
  - Wound haemorrhage [Recovered/Resolved]
  - Ear haemorrhage [Recovered/Resolved]
  - Haemorrhoids [Not Recovered/Not Resolved]
  - Incorrect route of product administration [Unknown]
  - Limb injury [Not Recovered/Not Resolved]
  - Psoriasis [Unknown]
  - Skin haemorrhage [Unknown]
  - Alcoholic liver disease [Not Recovered/Not Resolved]
  - Therapeutic response shortened [Unknown]
  - Multi-organ disorder [Not Recovered/Not Resolved]

NARRATIVE: CASE EVENT DATE: 20230101
